FAERS Safety Report 12881465 (Version 1)
Quarter: 2016Q4

REPORT INFORMATION
  Report Type: Spontaneous
  Country: FR (occurrence: FR)
  Receive Date: 20161025
  Receipt Date: 20161025
  Transmission Date: 20170207
  Serious: Yes (Hospitalization)
  Sender: FDA-Public Use
  Company Number: FR-PFIZER INC-2016486081

PATIENT
  Age: 42 Year
  Sex: Male

DRUGS (2)
  1. PYOSTACINE [Suspect]
     Active Substance: PRISTINAMYCIN
     Indication: ABSCESS
     Dosage: 1 G, 3X/DAY
     Route: 048
     Dates: start: 20160912, end: 20160927
  2. FRAGMINE [Suspect]
     Active Substance: DALTEPARIN SODIUM
     Indication: PROPHYLAXIS
     Dosage: 1 DF, 1X/DAY
     Route: 058
     Dates: start: 20160831, end: 20160929

REACTIONS (1)
  - Neutropenia [Recovered/Resolved]

NARRATIVE: CASE EVENT DATE: 20160920
